FAERS Safety Report 8316958 (Version 6)
Quarter: 2013Q2

REPORT INFORMATION
  Report Type: Spontaneous
  Country: US (occurrence: US)
  Receive Date: 20111230
  Receipt Date: 20130520
  Transmission Date: 20140414
  Serious: Yes (Hospitalization, Other)
  Sender: FDA-Public Use
  Company Number: US-ROCHE-801880

PATIENT
  Age: 49 Year
  Sex: Female
  Weight: 49.94 kg

DRUGS (1)
  1. ACCUTANE [Suspect]
     Indication: ACNE
     Route: 048
     Dates: start: 19960919, end: 19970227

REACTIONS (7)
  - Colitis ulcerative [Unknown]
  - Proctitis ulcerative [Unknown]
  - Crohn^s disease [Unknown]
  - Small intestinal obstruction [Unknown]
  - Inflammatory bowel disease [Unknown]
  - Large intestine polyp [Unknown]
  - Major depression [Unknown]
